FAERS Safety Report 21325253 (Version 1)
Quarter: 2022Q3

REPORT INFORMATION
  Report Type: Spontaneous
  Country: BG (occurrence: BG)
  Receive Date: 20220912
  Receipt Date: 20220912
  Transmission Date: 20221027
  Serious: Yes (Other)
  Sender: FDA-Public Use
  Company Number: BG-TAKEDA-2022TUS062578

PATIENT
  Age: 71 Year
  Sex: Male

DRUGS (1)
  1. ADCETRIS [Suspect]
     Active Substance: BRENTUXIMAB VEDOTIN
     Indication: Anaplastic large-cell lymphoma
     Dosage: 1.8 MILLIGRAM/KILOGRAM
     Route: 042

REACTIONS (5)
  - Joint swelling [Unknown]
  - Hypertensive crisis [Unknown]
  - Polyneuropathy [Unknown]
  - Rash maculo-papular [Unknown]
  - Pruritus [Unknown]
